FAERS Safety Report 19954436 (Version 2)
Quarter: 2022Q1

REPORT INFORMATION
  Report Type: Spontaneous
  Country: DE (occurrence: DE)
  Receive Date: 20211014
  Receipt Date: 20220307
  Transmission Date: 20220423
  Serious: Yes (Hospitalization)
  Sender: FDA-Public Use
  Company Number: DE-NOVARTISPH-NVSC2021DE229494

PATIENT
  Age: 28 Year
  Sex: Female
  Weight: 78 kg

DRUGS (11)
  1. FLUDARABINE [Suspect]
     Active Substance: FLUDARABINE PHOSPHATE
     Indication: Neoplasm
     Dosage: 25 MG/M2, QD
     Route: 042
     Dates: start: 20210910, end: 20210914
  2. CYCLOPHOSPHAMIDE [Suspect]
     Active Substance: CYCLOPHOSPHAMIDE
     Indication: Neoplasm
     Dosage: 60 MG/KG, QD
     Route: 042
     Dates: start: 20210908, end: 20210909
  3. PROLEUKIN [Suspect]
     Active Substance: ALDESLEUKIN
     Indication: Neoplasm
     Dosage: 600000 IU/KG, QD
     Route: 042
     Dates: start: 20210916, end: 20210917
  4. PEMBROLIZUMAB [Suspect]
     Active Substance: PEMBROLIZUMAB
     Indication: Neoplasm
     Dosage: 200 MG, QD
     Route: 042
     Dates: start: 20210818, end: 20210818
  5. PEMBROLIZUMAB [Suspect]
     Active Substance: PEMBROLIZUMAB
     Dosage: 200 MG QD
     Route: 042
     Dates: start: 20210927, end: 20210927
  6. CEFUROXIME AXETIL [Suspect]
     Active Substance: CEFUROXIME AXETIL
     Indication: Neoplasm
     Dosage: 300 ML, QD
     Route: 042
     Dates: start: 20210915, end: 20210915
  7. MEPERIDINE [Concomitant]
     Active Substance: MEPERIDINE
     Indication: Chills
     Dosage: 25 MG
     Route: 042
     Dates: start: 20210917, end: 20210917
  8. METAMIZOLE [Concomitant]
     Active Substance: METAMIZOLE
     Indication: Pyrexia
     Dosage: UNK
     Route: 065
     Dates: start: 20210915, end: 20210920
  9. ACETAMINOPHEN [Concomitant]
     Active Substance: ACETAMINOPHEN
     Indication: Pyrexia
     Dosage: 1 G
     Route: 042
     Dates: start: 20210917, end: 20210921
  10. TAZOBACTAM [Concomitant]
     Active Substance: TAZOBACTAM
     Indication: Teething
     Dosage: 4.5 G
     Route: 042
     Dates: start: 20210917, end: 20210923
  11. DIMENHYDRINATE [Concomitant]
     Active Substance: DIMENHYDRINATE
     Indication: Vomiting
     Dosage: 62 MG
     Route: 042
     Dates: start: 20210916, end: 20210919

REACTIONS (1)
  - General physical health deterioration [Recovered/Resolved]

NARRATIVE: CASE EVENT DATE: 20210920
